FAERS Safety Report 5562370-0 (Version None)
Quarter: 2007Q4

REPORT INFORMATION
  Report Type: 
  Country: None (occurrence: None)
  Receive Date: 20071215
  Receipt Date: 20070906
  Transmission Date: 20080405
  Serious: No
  Sender: FDA-Public Use
  Company Number: US-AMGEN-KDL230722

PATIENT
  Sex: Male
  Weight: 77.6 kg

DRUGS (7)
  1. PROCRIT [Suspect]
     Indication: MYELODYSPLASTIC SYNDROME
     Route: 058
     Dates: start: 20060322
  2. ARANESP [Suspect]
     Route: 058
     Dates: start: 20060118, end: 20060201
  3. NORVASC [Concomitant]
  4. FOLIC ACID [Concomitant]
  5. FOSAMAX [Concomitant]
  6. OSCAL [Concomitant]
  7. PRILOSEC [Concomitant]

REACTIONS (2)
  - BLOOD COUNT ABNORMAL [None]
  - PNEUMONIA [None]
